FAERS Safety Report 18972031 (Version 1)
Quarter: 2021Q1

REPORT INFORMATION
  Report Type: Spontaneous
  Country: US (occurrence: US)
  Receive Date: 20210304
  Receipt Date: 20210304
  Transmission Date: 20210420
  Serious: Yes (Death)
  Sender: FDA-Public Use
  Company Number: None

PATIENT
  Sex: Female

DRUGS (19)
  1. UDENYCA [Suspect]
     Active Substance: PEGFILGRASTIM-CBQV
     Indication: MALIGNANT CONNECTIVE TISSUE NEOPLASM
     Route: 058
     Dates: start: 20210119, end: 202102
  2. DIPHENHYDRAMINE. [Concomitant]
     Active Substance: DIPHENHYDRAMINE
  3. NARCAN [Concomitant]
     Active Substance: NALOXONE HYDROCHLORIDE
  4. SOD CHL 0.9% [Concomitant]
  5. VITAMIN D [Concomitant]
     Active Substance: VITAMIN D NOS
  6. ONDANSETRON [Concomitant]
     Active Substance: ONDANSETRON
  7. PACLITAXEL. [Suspect]
     Active Substance: PACLITAXEL
     Indication: MALIGNANT CONNECTIVE TISSUE NEOPLASM
     Dosage: ?          OTHER FREQUENCY:EVERY 12 WEEKS;?
     Route: 042
     Dates: start: 20201209, end: 202102
  8. HYDROMORPHON [Concomitant]
     Active Substance: HYDROMORPHONE
  9. LEVOFLOXACIN. [Concomitant]
     Active Substance: LEVOFLOXACIN
  10. MAGNESIUM [Concomitant]
     Active Substance: MAGNESIUM
  11. MIDODRINE [Concomitant]
     Active Substance: MIDODRINE
  12. RIFAMPIN. [Concomitant]
     Active Substance: RIFAMPIN
  13. FAMOTIDINE. [Concomitant]
     Active Substance: FAMOTIDINE
  14. GEMCITABINE. [Concomitant]
     Active Substance: GEMCITABINE
  15. MIRTAZAPINE. [Concomitant]
     Active Substance: MIRTAZAPINE
  16. CIPROFLOXACN [Concomitant]
     Active Substance: CIPROFLOXACIN
  17. MORPHINE SUL [Concomitant]
     Active Substance: MORPHINE SULFATE
  18. VANCOMYCIN [Concomitant]
     Active Substance: VANCOMYCIN
  19. METRONEDAZOL [Concomitant]

REACTIONS (1)
  - Death [None]
